FAERS Safety Report 5060268-8 (Version None)
Quarter: 2006Q3

REPORT INFORMATION
  Report Type: 
  Country: None (occurrence: None)
  Receive Date: 20060720
  Receipt Date: 20060711
  Transmission Date: 20061208
  Serious: Yes (Life-Threatening)
  Sender: FDA-Public Use
  Company Number: T200600727

PATIENT
  Age: 64 Year
  Sex: Male

DRUGS (1)
  1. HEXABRIX [Suspect]
     Indication: CATHETERISATION CARDIAC
     Dosage: 10 ML, SINGLE
     Dates: start: 20060610, end: 20060610

REACTIONS (3)
  - BLOOD PRESSURE DECREASED [None]
  - INCONTINENCE [None]
  - SHOCK [None]
